FAERS Safety Report 14123121 (Version 3)
Quarter: 2017Q4

REPORT INFORMATION
  Report Type: Spontaneous
  Country: IT (occurrence: IT)
  Receive Date: 20171025
  Receipt Date: 20171102
  Transmission Date: 20180321
  Serious: Yes (Other)
  Sender: FDA-Public Use
  Company Number: IT-SUN PHARMACEUTICAL INDUSTRIES LTD-2017RR-152813

PATIENT
  Age: 74 Year
  Sex: Female

DRUGS (9)
  1. CISPLATIN. [Suspect]
     Active Substance: CISPLATIN
     Indication: CHOLANGIOCARCINOMA
     Dosage: 25 MG/M2, CYCLICAL, ON DAYS 1 AND 8 EVERY 3 WEEKS
     Route: 065
     Dates: start: 20151127
  2. GEMCITABINE [Suspect]
     Active Substance: GEMCITABINE\GEMCITABINE HYDROCHLORIDE
     Dosage: DOSE REDUCED BY 10%
     Route: 065
  3. GEMCITABINE [Suspect]
     Active Substance: GEMCITABINE\GEMCITABINE HYDROCHLORIDE
     Dosage: DOSE REDUCED BY 20 %
     Route: 065
  4. CISPLATIN. [Suspect]
     Active Substance: CISPLATIN
     Indication: METASTASES TO LUNG
     Dosage: CYCLICAL
     Route: 065
  5. CISPLATIN. [Suspect]
     Active Substance: CISPLATIN
     Dosage: DOSE REDUCED BY 10%
     Route: 065
  6. GEMCITABINE [Suspect]
     Active Substance: GEMCITABINE\GEMCITABINE HYDROCHLORIDE
     Indication: METASTASES TO LUNG
     Dosage: CYCLICAL
     Route: 065
  7. GEMCITABINE [Suspect]
     Active Substance: GEMCITABINE\GEMCITABINE HYDROCHLORIDE
     Dosage: 1000 MG/M2, CYCLICAL, ON DAYS 1, 8 AND 15 EVERY 4 WEEKS
     Route: 065
     Dates: start: 201604, end: 2016
  8. GEMCITABINE [Suspect]
     Active Substance: GEMCITABINE\GEMCITABINE HYDROCHLORIDE
     Dosage: MAINTENANCE THERAPY
     Route: 065
     Dates: end: 201702
  9. GEMCITABINE [Suspect]
     Active Substance: GEMCITABINE\GEMCITABINE HYDROCHLORIDE
     Indication: CHOLANGIOCARCINOMA
     Dosage: 1000 MG/M2, ON DAYS 1 AND 8 EVERY THREE WEEKS
     Route: 065
     Dates: start: 201511, end: 201601

REACTIONS (7)
  - Vomiting [Recovered/Resolved]
  - Drug ineffective [Unknown]
  - Disease progression [Unknown]
  - Thrombocytopenia [Unknown]
  - Nausea [Unknown]
  - Lymphoedema [Unknown]
  - Constipation [Unknown]

NARRATIVE: CASE EVENT DATE: 2016
